FAERS Safety Report 6305713-2 (Version None)
Quarter: 2009Q3

REPORT INFORMATION
  Report Type: 
  Country: None (occurrence: None)
  Receive Date: 20090812
  Receipt Date: 20070514
  Transmission Date: 20100115
  Serious: Yes (Hospitalization, Other)
  Sender: FDA-Public Use
  Company Number: US-ASTRAZENECA-2006UW22082

PATIENT
  Age: 539 Month
  Sex: Female
  Weight: 78 kg

DRUGS (17)
  1. SEROQUEL [Suspect]
     Indication: DEPRESSION
     Route: 048
     Dates: start: 20010101
  2. SEROQUEL [Suspect]
     Indication: SLEEP DISORDER
     Route: 048
     Dates: start: 20010101
  3. SEROQUEL [Suspect]
     Route: 048
     Dates: start: 20050811
  4. SEROQUEL [Suspect]
     Route: 048
     Dates: start: 20050811
  5. PROZAC [Concomitant]
     Dosage: 20MG-80MG
     Route: 048
     Dates: start: 20010125
  6. PROZAC [Concomitant]
  7. BUSPAR [Concomitant]
  8. BUSPAR [Concomitant]
     Route: 048
     Dates: start: 20010125
  9. TRAZODONE HCL [Concomitant]
     Dosage: 20MG-100MG
     Route: 048
     Dates: start: 20010125
  10. HYDROCHLOROTHIAZIDE [Concomitant]
     Route: 048
     Dates: start: 20050811
  11. METHYLPREDNISOLONE [Concomitant]
     Route: 048
     Dates: start: 20020927
  12. TRAMADOL HCL [Concomitant]
     Route: 048
     Dates: start: 20040412
  13. TIZANIDINE HYDROCHLORIDE [Concomitant]
     Route: 048
     Dates: start: 20030227
  14. HYDROCODONE BITARTRATE + ACETAMINOPHEN [Concomitant]
     Dosage: 10MG AND 650MG
     Route: 048
     Dates: start: 20040425
  15. PROTONIX [Concomitant]
     Route: 048
     Dates: start: 20050810
  16. TETRACYCLINE [Concomitant]
     Route: 048
     Dates: start: 20050814
  17. CYCLOBENZAPRINE HCL [Concomitant]
     Route: 048
     Dates: start: 20030828

REACTIONS (14)
  - DIABETIC KETOACIDOSIS [None]
  - DYSMENORRHOEA [None]
  - GASTRIC ULCER [None]
  - GASTRITIS [None]
  - GASTROINTESTINAL HAEMORRHAGE [None]
  - GLUCOSE TOLERANCE IMPAIRED [None]
  - HELICOBACTER INFECTION [None]
  - MENORRHAGIA [None]
  - OVARIAN CYST [None]
  - PELVIC PAIN [None]
  - PEPTIC ULCER HAEMORRHAGE [None]
  - TYPE 2 DIABETES MELLITUS [None]
  - UTERINE LEIOMYOMA [None]
  - VOMITING [None]
